FAERS Safety Report 17716024 (Version 1)
Quarter: 2020Q2

REPORT INFORMATION
  Report Type: Spontaneous
  Country: US (occurrence: US)
  Receive Date: 20200428
  Receipt Date: 20200428
  Transmission Date: 20200714
  Serious: No
  Sender: FDA-Public Use
  Company Number: US-TEVA-2020-US-1227396

PATIENT
  Sex: Female

DRUGS (2)
  1. METOPROLOL SUCCINATE EXTENDED-RELEASE TABLETS TEVA [Suspect]
     Active Substance: METOPROLOL SUCCINATE
     Indication: ATRIAL FIBRILLATION
     Dosage: FORM OF ADMIN: EXTENDED RELEASE TABLET.
     Route: 065
     Dates: start: 2010
  2. METOPROLOL SUCCINATE EXTENDED-RELEASE TABLETS TEVA [Suspect]
     Active Substance: METOPROLOL SUCCINATE
     Indication: HEART RATE ABNORMAL

REACTIONS (2)
  - Gastrooesophageal reflux disease [Not Recovered/Not Resolved]
  - Gluten sensitivity [Unknown]
